FAERS Safety Report 9102750 (Version 1)
Quarter: 2013Q1

REPORT INFORMATION
  Report Type: Spontaneous
  Country: US (occurrence: US)
  Receive Date: 20130219
  Receipt Date: 20130219
  Transmission Date: 20140127
  Serious: Yes (Hospitalization)
  Sender: FDA-Public Use
  Company Number: US-PFIZER INC-2013060064

PATIENT
  Age: 66 Year
  Sex: Male
  Weight: 67.12 kg

DRUGS (9)
  1. MORPHINE SULFATE [Suspect]
     Indication: TRIGEMINAL NEURALGIA
     Dosage: 15 MG, UNK
  2. MORPHINE SULFATE [Suspect]
     Dosage: 2 MG, ONCE
     Dates: start: 20130206, end: 20130207
  3. LYRICA [Suspect]
     Indication: TRIGEMINAL NEURALGIA
     Dosage: 100 MG, 2X/DAY
     Dates: start: 20130115
  4. IBUPROFEN [Suspect]
     Indication: TRIGEMINAL NEURALGIA
     Dosage: 200 MG, AS NEEDED
  5. IBUPROFEN [Suspect]
     Dosage: UNK,15-16 TIMES IN A DAY
  6. OXYCODONE HYDROCHLORIDE [Suspect]
     Indication: TRIGEMINAL NEURALGIA
     Dosage: UNK
  7. TIOTROPIUM BROMIDE MONOHYDRATE [Suspect]
     Indication: CHRONIC OBSTRUCTIVE PULMONARY DISEASE
     Dosage: 18 UG, 1X/DAY
     Dates: start: 200808
  8. HYDROCODONE [Suspect]
     Indication: TRIGEMINAL NEURALGIA
     Dosage: UNK
  9. ADVAIR DISKUS [Concomitant]
     Indication: CHRONIC OBSTRUCTIVE PULMONARY DISEASE
     Dosage: 500/50 MG, 2X/DAY

REACTIONS (7)
  - Pneumonia aspiration [Recovered/Resolved]
  - Lung disorder [Unknown]
  - Oropharyngeal pain [Unknown]
  - Weight decreased [Unknown]
  - Blood pressure decreased [Recovered/Resolved]
  - Heart rate increased [Recovered/Resolved]
  - Pain [Unknown]
